FAERS Safety Report 4440813-3 (Version None)
Quarter: 2004Q3

REPORT INFORMATION
  Report Type: 
  Country: None (occurrence: None)
  Receive Date: 20040903
  Receipt Date: 20040729
  Transmission Date: 20050211
  Serious: Yes (Other)
  Sender: FDA-Public Use
  Company Number: US-GLAXOSMITHKLINE-A0520283A

PATIENT
  Age: 46 Year
  Sex: Female
  Weight: 73.6 kg

DRUGS (7)
  1. WELLBUTRIN [Suspect]
     Indication: DEPRESSION
     Route: 048
     Dates: start: 20040701, end: 20040720
  2. DIOVAN [Concomitant]
     Indication: HYPERTENSION
     Route: 048
  3. ACIPHEX [Concomitant]
     Indication: GASTROOESOPHAGEAL REFLUX DISEASE
     Route: 048
  4. ZYRTEC [Concomitant]
     Indication: HYPERSENSITIVITY
     Route: 048
  5. SINGULAIR [Concomitant]
     Indication: HYPERSENSITIVITY
     Route: 048
  6. VIOXX [Concomitant]
     Indication: MYOSITIS
     Route: 048
  7. LEXAPRO [Concomitant]
     Indication: DEPRESSION
     Dosage: .5TAB PER DAY
     Route: 048
     Dates: start: 20040727

REACTIONS (9)
  - FATIGUE [None]
  - HEMIPARESIS [None]
  - MIGRAINE [None]
  - MUSCLE TWITCHING [None]
  - NIGHTMARE [None]
  - PALPITATIONS [None]
  - PARAESTHESIA [None]
  - SENSATION OF HEAVINESS [None]
  - TREMOR [None]
